FAERS Safety Report 7868132 (Version 4)
Quarter: 2012Q4

REPORT INFORMATION
  Report Type: 
  Country: US (occurrence: US)
  Receive Date: 20110323
  Receipt Date: 20120905
  Transmission Date: 20130627
  Serious: Yes (Hospitalization)
  Sender: FDA-Public Use
  Company Number: US-BAYER-2011-023836

PATIENT
  Age: 25 Year
  Sex: Female
  Weight: 126.98 kg

DRUGS (7)
  1. YASMIN [Suspect]
     Dosage: UNK
     Route: 048
     Dates: start: 2003, end: 2007
  2. TYLENOL [PARACETAMOL] [Concomitant]
     Indication: HEADACHE
     Dosage: UNK UNK, PRN
  3. CLARITIN [Concomitant]
     Indication: MULTIPLE ALLERGIES
     Dosage: UNK UNK, PRN
  4. ADVIL COLD AND SINUS [Concomitant]
     Indication: NASOPHARYNGITIS
     Dosage: UNK UNK, PRN
  5. ^PEPTO^ [Concomitant]
     Indication: GASTRIC DISORDER
     Dosage: UNK UNK, PRN
  6. BALZIVA [Concomitant]
     Dosage: UNK
     Dates: start: 20080411, end: 20090119
  7. BALZIVA [Concomitant]
     Dosage: UNK
     Dates: start: 20090928, end: 20100118

REACTIONS (3)
  - Pulmonary embolism [Unknown]
  - Thrombosis [Unknown]
  - Deep vein thrombosis [None]
